FAERS Safety Report 6496902-5 (Version None)
Quarter: 2009Q4

REPORT INFORMATION
  Report Type: 
  Country: None (occurrence: None)
  Receive Date: 20091215
  Receipt Date: 20091207
  Transmission Date: 20100525
  Serious: Yes (Hospitalization)
  Sender: FDA-Public Use
  Company Number: US-BIOGENIDEC-2009BI036847

PATIENT
  Age: 63 Year
  Sex: Female
  Weight: 72 kg

DRUGS (3)
  1. AVONEX [Suspect]
     Indication: MULTIPLE SCLEROSIS
     Route: 030
     Dates: start: 20030801
  2. AVONEX [Suspect]
     Route: 030
     Dates: start: 20001201, end: 20030701
  3. MEDICATIONS (NOS) [Concomitant]

REACTIONS (7)
  - ANAEMIA [None]
  - APLASIA PURE RED CELL [None]
  - CHEST PAIN [None]
  - HYPERTENSION [None]
  - HYPOTENSION [None]
  - INFLUENZA LIKE ILLNESS [None]
  - VOMITING [None]
